FAERS Safety Report 24052022 (Version 1)
Quarter: 2024Q3

REPORT INFORMATION
  Report Type: Spontaneous
  Country: US (occurrence: US)
  Receive Date: 20240704
  Receipt Date: 20240704
  Transmission Date: 20241017
  Serious: No
  Sender: ABBVIE
  Company Number: US-ABBVIE-5822970

PATIENT
  Sex: Female
  Weight: 61 kg

DRUGS (3)
  1. BOTOX COSMETIC [Suspect]
     Active Substance: ONABOTULINUMTOXINA
     Indication: Temporomandibular pain and dysfunction syndrome
     Dosage: TIME INTERVAL: AS NECESSARY: FREQUENCY : EVERY 6 MONTHS
     Route: 065
     Dates: start: 202006, end: 202006
  2. BOTOX COSMETIC [Suspect]
     Active Substance: ONABOTULINUMTOXINA
     Indication: Temporomandibular pain and dysfunction syndrome
     Dosage: TIME INTERVAL: AS NECESSARY
     Route: 065
     Dates: start: 20240531, end: 20240531
  3. BOTOX COSMETIC [Suspect]
     Active Substance: ONABOTULINUMTOXINA
     Indication: Temporomandibular pain and dysfunction syndrome
     Dosage: TIME INTERVAL: AS NECESSARY: FREQUENCY : EVERY 6 MONTHS
     Route: 065
     Dates: start: 202211, end: 202211

REACTIONS (3)
  - Maternal exposure during pregnancy [Unknown]
  - Live birth [Unknown]
  - Off label use [Unknown]
